FAERS Safety Report 15904116 (Version 2)
Quarter: 2020Q1

REPORT INFORMATION
  Report Type: Spontaneous
  Country: US (occurrence: US)
  Receive Date: 20190204
  Receipt Date: 20200203
  Transmission Date: 20200409
  Serious: No
  Sender: FDA-Public Use
  Company Number: US-AUROBINDO-AUR-APU-2018-059600

PATIENT

DRUGS (1)
  1. CEFDINIR FOR ORAL SUSPENSION 250 MG/5 ML [Suspect]
     Active Substance: CEFDINIR
     Indication: PRODUCT USED FOR UNKNOWN INDICATION
     Dosage: 6 ML TWO TIMES PER DAY
     Route: 065
     Dates: start: 20181128, end: 20181201

REACTIONS (2)
  - Abdominal pain [Recovered/Resolved]
  - Product container seal issue [Unknown]

NARRATIVE: CASE EVENT DATE: 20181201
